FAERS Safety Report 9500682 (Version 3)
Quarter: 2013Q4

REPORT INFORMATION
  Report Type: Spontaneous
  Country: JP (occurrence: JP)
  Receive Date: 20130905
  Receipt Date: 20131002
  Transmission Date: 20140711
  Serious: Yes (Hospitalization, Other)
  Sender: FDA-Public Use
  Company Number: JP-ROCHE-1264310

PATIENT
  Age: 57 Year
  Sex: Female
  Weight: 55 kg

DRUGS (2)
  1. XELODA [Suspect]
     Indication: BREAST CANCER
     Dosage: IT IS ADMINISTER/ONE WEEKLY HOLIDAY MEDICINE FOR THREE WEEKS.
     Route: 048
     Dates: start: 20130131, end: 20130807
  2. FEMARA [Suspect]
     Indication: BREAST CANCER
     Route: 048
     Dates: end: 20130814

REACTIONS (4)
  - Jugular vein thrombosis [Not Recovered/Not Resolved]
  - Vena cava thrombosis [Not Recovered/Not Resolved]
  - Thrombophlebitis [Unknown]
  - Intracranial venous sinus thrombosis [Unknown]
